FAERS Safety Report 7826182-7 (Version None)
Quarter: 2011Q4

REPORT INFORMATION
  Report Type: 
  Country: None (occurrence: None)
  Receive Date: 20111020
  Receipt Date: 20111012
  Transmission Date: 20120403
  Serious: Yes (Death, Hospitalization, Other)
  Sender: FDA-Public Use
  Company Number: US-BIOGENIDEC-2011BI003344

PATIENT
  Age: 52 Year
  Sex: Female
  Weight: 61 kg

DRUGS (6)
  1. TYSABRI [Suspect]
     Indication: MULTIPLE SCLEROSIS
     Route: 042
     Dates: start: 20070601, end: 20110121
  2. LEVOTHYROXINE SODIUM [Concomitant]
     Indication: HYPOTHYROIDISM
     Route: 048
  3. SERTALINE [Concomitant]
     Indication: DEPRESSION
     Route: 048
  4. ALLEGRA D 24 HOUR [Concomitant]
     Indication: SEASONAL ALLERGY
  5. HYDROMORPHONE HCL [Concomitant]
     Indication: PAIN
     Route: 048
  6. ESTRADIOL [Concomitant]
     Route: 048

REACTIONS (5)
  - GENERAL PHYSICAL HEALTH DETERIORATION [None]
  - DEATH [None]
  - PROGRESSIVE MULTIFOCAL LEUKOENCEPHALOPATHY [None]
  - ANAEMIA [None]
  - BLOOD FIBRINOGEN DECREASED [None]
